FAERS Safety Report 4403935-9 (Version None)
Quarter: 2004Q3

REPORT INFORMATION
  Report Type: 
  Country: None (occurrence: None)
  Receive Date: 20040719
  Receipt Date: 20040705
  Transmission Date: 20050211
  Serious: Yes (Death)
  Sender: FDA-Public Use
  Company Number: FR-JNJFOC-20040501493

PATIENT
  Age: 85 Year
  Sex: Female

DRUGS (2)
  1. PROPULSID [Suspect]
     Indication: OESOPHAGEAL ANASTOMOSIS
     Dosage: 10 MG, 4 IN 1 DAY, ORAL
     Route: 048
     Dates: start: 20030616, end: 20030621
  2. PROPULSID [Suspect]
     Indication: VOMITING
     Dosage: 10 MG, 4 IN 1 DAY, ORAL
     Route: 048
     Dates: start: 20030616, end: 20030621

REACTIONS (1)
  - DEATH [None]
